FAERS Safety Report 9348216 (Version 1)
Quarter: 2013Q2

REPORT INFORMATION
  Report Type: Spontaneous
  Country: US (occurrence: US)
  Receive Date: 20130614
  Receipt Date: 20130614
  Transmission Date: 20140414
  Serious: Yes (Death)
  Sender: FDA-Public Use
  Company Number: US-BAYER-2013-072048

PATIENT
  Sex: Female

DRUGS (2)
  1. YAZ [Suspect]
     Dosage: UNK
     Dates: start: 2012
  2. YASMIN [Suspect]
     Dosage: UNK
     Dates: start: 2012

REACTIONS (5)
  - Pulmonary embolism [Fatal]
  - Pain [None]
  - Injury [Fatal]
  - Pain [Fatal]
  - Anxiety [None]
